FAERS Safety Report 20834696 (Version 2)
Quarter: 2022Q2

REPORT INFORMATION
  Report Type: Spontaneous
  Country: NL (occurrence: NL)
  Receive Date: 20220516
  Receipt Date: 20220519
  Transmission Date: 20220721
  Serious: Yes (Hospitalization)
  Sender: FDA-Public Use
  Company Number: None

PATIENT
  Age: 81 Year
  Sex: Male

DRUGS (2)
  1. METHOTREXATE (METHOTREXATE SODIUM) [Suspect]
     Active Substance: METHOTREXATE SODIUM
     Indication: Muscle injury
     Dosage: UNK
     Route: 065
     Dates: start: 202109
  2. FOLIC ACID [Concomitant]
     Active Substance: FOLIC ACID
     Indication: Product used for unknown indication
     Dosage: UNK
     Route: 065

REACTIONS (11)
  - Coma [Recovered/Resolved]
  - Visual impairment [Unknown]
  - Speech disorder [Recovering/Resolving]
  - Nausea [Unknown]
  - Herpes zoster [Recovering/Resolving]
  - Memory impairment [Recovering/Resolving]
  - Vomiting [Unknown]
  - Psychotic disorder [Recovered/Resolved]
  - Disturbance in attention [Recovering/Resolving]
  - Alopecia [Unknown]
  - Neuralgia [Recovering/Resolving]

NARRATIVE: CASE EVENT DATE: 20210901
